FAERS Safety Report 11823459 (Version 3)
Quarter: 2016Q1

REPORT INFORMATION
  Report Type: Report from Study
  Country: KR (occurrence: KR)
  Receive Date: 20151210
  Receipt Date: 20160208
  Transmission Date: 20160525
  Serious: Yes (Hospitalization)
  Sender: FDA-Public Use
  Company Number: PHHO2014KR019503

PATIENT
  Age: 78 Year
  Sex: Male
  Weight: 57 kg

DRUGS (13)
  1. POTASSIUM [Concomitant]
     Active Substance: POTASSIUM
     Indication: PROPHYLAXIS
     Dosage: 40 U, CONTINUOUS INFUSION
     Route: 042
     Dates: start: 20131101, end: 20131101
  2. PAZOPANIB [Suspect]
     Active Substance: PAZOPANIB
     Dosage: 400 MG, QD
     Route: 048
     Dates: start: 20131118
  3. PERDIPINE [Concomitant]
     Active Substance: NICARDIPINE HYDROCHLORIDE
     Indication: HYPERTENSION
     Dosage: 10 U, QD
     Route: 042
     Dates: start: 20131101, end: 20131101
  4. NORVASC [Concomitant]
     Active Substance: AMLODIPINE BESYLATE
     Dosage: 10 U, QD
     Route: 048
     Dates: start: 20130817
  5. ATACAND [Concomitant]
     Active Substance: CANDESARTAN CILEXETIL
     Indication: PRODUCT USED FOR UNKNOWN INDICATION
     Dosage: 8 U, QD
     Route: 048
     Dates: start: 19990101, end: 20130613
  6. ATACAND [Concomitant]
     Active Substance: CANDESARTAN CILEXETIL
     Dosage: 16 U, QD
     Route: 048
     Dates: start: 20130614, end: 20131028
  7. ISOSORBIDE DINITRATE. [Concomitant]
     Active Substance: ISOSORBIDE DINITRATE
     Indication: HYPERTENSION
     Dosage: 10 U, TID
     Route: 048
     Dates: start: 20131101
  8. DILATREND [Concomitant]
     Active Substance: CARVEDILOL
     Indication: HYPERTENSION
     Dosage: 6.25 U, QD
     Route: 048
     Dates: start: 20131101
  9. CARSODIL [Concomitant]
     Indication: HYPERTENSION
     Dosage: 10 U, TID
     Route: 048
     Dates: start: 20131101
  10. PAZOPANIB [Suspect]
     Active Substance: PAZOPANIB
     Indication: METASTATIC RENAL CELL CARCINOMA
     Dosage: 600 MG, QD
     Route: 048
     Dates: start: 20130515
  11. CARDURAXL [Concomitant]
     Indication: PRODUCT USED FOR UNKNOWN INDICATION
     Dosage: 4 U, QD
     Route: 048
     Dates: start: 19990101
  12. APETROL                            /00284501/ [Concomitant]
     Indication: DECREASED APPETITE
     Dosage: UNK, PRN
     Route: 048
     Dates: start: 20131219, end: 20140105
  13. NORVASC [Concomitant]
     Active Substance: AMLODIPINE BESYLATE
     Indication: HYPERTENSION
     Dosage: 5 U, QD
     Route: 048
     Dates: start: 20130808, end: 20130815

REACTIONS (1)
  - Azotaemia [Not Recovered/Not Resolved]

NARRATIVE: CASE EVENT DATE: 20140106
